FAERS Safety Report 6521393-5 (Version None)
Quarter: 2009Q4

REPORT INFORMATION
  Report Type: 
  Country: None (occurrence: None)
  Receive Date: 20091230
  Receipt Date: 20091222
  Transmission Date: 20100525
  Serious: Yes (Hospitalization)
  Sender: FDA-Public Use
  Company Number: JP-MILLENNIUM PHARMACEUTICALS, INC.-2009-04982

PATIENT

DRUGS (24)
  1. VELCADE [Suspect]
     Indication: MULTIPLE MYELOMA
     Dosage: 1.78 MG, UNK
     Route: 042
     Dates: start: 20090914, end: 20090924
  2. VELCADE [Suspect]
     Dosage: 1.75 MG, UNK
     Route: 042
     Dates: start: 20091005, end: 20091015
  3. VELCADE [Suspect]
     Dosage: 1.71 MG, UNK
     Route: 042
     Dates: start: 20091030, end: 20091106
  4. VELCADE [Suspect]
     Dosage: 1.67 MG, UNK
     Route: 042
     Dates: start: 20091109, end: 20091123
  5. MELPHALAN [Suspect]
     Indication: MULTIPLE MYELOMA
     Dosage: 9 MG/M2, UNK
     Route: 048
     Dates: start: 20090914, end: 20091102
  6. PREDNISONE [Suspect]
     Indication: MULTIPLE MYELOMA
     Dosage: 80 MG, UNK
     Route: 048
     Dates: start: 20090914, end: 20090917
  7. PREDNISONE [Suspect]
     Dosage: 75 MG, UNK
     Route: 048
     Dates: start: 20091030, end: 20091102
  8. PREDNISONE [Suspect]
     Dosage: 30 MG, UNK
     Route: 048
     Dates: start: 20090918, end: 20091103
  9. PREDNISONE [Suspect]
     Dosage: 20 MG, UNK
     Route: 048
     Dates: start: 20090919, end: 20091104
  10. PREDNISONE [Suspect]
     Dosage: 10 MG, UNK
     Route: 048
     Dates: start: 20090920, end: 20091105
  11. PREDNISONE [Suspect]
     Dosage: 5 MG, UNK
     Route: 048
     Dates: start: 20090921, end: 20091106
  12. OXYCONTIN [Suspect]
     Indication: CANCER PAIN
     Dosage: 20 MG, QD
     Route: 048
     Dates: start: 20090907
  13. OMEPRAZOLE [Concomitant]
     Indication: REFLUX OESOPHAGITIS
     Dosage: 20 MG, QD
     Route: 048
     Dates: start: 20090901, end: 20091124
  14. LENDORMIN [Concomitant]
     Indication: INSOMNIA
     Dosage: UNK
     Route: 048
     Dates: start: 20090907
  15. SELTOUCH [Concomitant]
     Indication: CANCER PAIN
     Dosage: UNK
     Route: 062
     Dates: start: 20090830
  16. DOGMATYL [Concomitant]
     Indication: ANXIETY DISORDER
     Dosage: 150 MG, QD
     Route: 048
     Dates: start: 20090902, end: 20091124
  17. OXYNORM [Concomitant]
     Indication: CANCER PAIN
     Dosage: UNK
     Route: 048
     Dates: start: 20090824
  18. NOVAMIN                            /00013301/ [Concomitant]
     Indication: PROPHYLAXIS OF NAUSEA AND VOMITING
     Dosage: 15 MG, QD
     Route: 048
     Dates: start: 20090924, end: 20091124
  19. HYPEN [Concomitant]
     Indication: CANCER PAIN
     Dosage: 400 MG, QD
     Route: 048
     Dates: start: 20090903, end: 20091124
  20. BAKTAR [Concomitant]
     Indication: ANTIBIOTIC PROPHYLAXIS
     Dosage: 4 DF, QD
     Route: 048
     Dates: start: 20090914
  21. VALTREX [Concomitant]
     Indication: ANTIVIRAL PROPHYLAXIS
     Dosage: 500 MG, QD
     Route: 048
     Dates: start: 20090914
  22. MAGLAX [Concomitant]
     Indication: CONSTIPATION
     Dosage: UNK
     Route: 048
     Dates: start: 20090828, end: 20091124
  23. PURSENNID                          /00571901/ [Concomitant]
     Indication: CONSTIPATION
     Dosage: UNK
     Route: 048
     Dates: start: 20090828, end: 20091124
  24. MUCOSTA [Concomitant]
     Indication: GASTRITIS
     Dosage: 200 MG, QD
     Route: 048
     Dates: start: 20090903, end: 20091124

REACTIONS (1)
  - DIARRHOEA [None]
